FAERS Safety Report 5971675-0 (Version None)
Quarter: 2008Q4

REPORT INFORMATION
  Report Type: 
  Country: None (occurrence: None)
  Receive Date: 20081201
  Receipt Date: 20081118
  Transmission Date: 20090506
  Serious: Yes (Other)
  Sender: FDA-Public Use
  Company Number: US-SANOFI-SYNTHELABO-A03200804612

PATIENT
  Sex: Female
  Weight: 51.7 kg

DRUGS (3)
  1. PLAVIX [Suspect]
     Indication: STENT PLACEMENT
     Route: 048
     Dates: start: 20071107, end: 20081114
  2. CRESTOR [Concomitant]
     Indication: DRUG USE FOR UNKNOWN INDICATION
     Route: 065
     Dates: start: 20070101
  3. DIOVAN [Concomitant]
     Indication: DRUG USE FOR UNKNOWN INDICATION
     Route: 065

REACTIONS (8)
  - BLOOD PRESSURE INCREASED [None]
  - HYPOAESTHESIA FACIAL [None]
  - MALAISE [None]
  - PYREXIA [None]
  - THROMBOSIS [None]
  - VASCULITIS [None]
  - VASODILATATION [None]
  - VIRAL INFECTION [None]
